FAERS Safety Report 20194228 (Version 2)
Quarter: 2022Q1

REPORT INFORMATION
  Report Type: Spontaneous
  Country: US (occurrence: US)
  Receive Date: 20211216
  Receipt Date: 20220113
  Transmission Date: 20220423
  Serious: Yes (Other)
  Sender: FDA-Public Use
  Company Number: US-TEVA-2021-US-1986902

PATIENT
  Age: 28 Year
  Sex: Female

DRUGS (2)
  1. TRIENTINE [Suspect]
     Active Substance: TRIENTINE
     Indication: Hepato-lenticular degeneration
     Route: 065
  2. ZINC ACETATE [Concomitant]
     Active Substance: ZINC ACETATE
     Indication: Hepato-lenticular degeneration
     Route: 065

REACTIONS (1)
  - Cognitive disorder [Recovering/Resolving]
